FAERS Safety Report 21284106 (Version 1)
Quarter: 2022Q3

REPORT INFORMATION
  Report Type: Report from Study
  Country: CZ (occurrence: CZ)
  Receive Date: 20220901
  Receipt Date: 20220901
  Transmission Date: 20221027
  Serious: Yes (Hospitalization)
  Sender: FDA-Public Use
  Company Number: CZ-BIOGEN-2022BI01151328

PATIENT
  Age: 32 Year
  Sex: Female

DRUGS (7)
  1. TYSABRI [Suspect]
     Active Substance: NATALIZUMAB
     Indication: Product used for unknown indication
     Route: 050
     Dates: start: 20110719
  2. TRAZODONE HYDROCHLORIDE [Concomitant]
     Active Substance: TRAZODONE HYDROCHLORIDE
     Indication: Multiple sclerosis
     Route: 050
     Dates: start: 20170313
  3. BACLOFEN [Concomitant]
     Active Substance: BACLOFEN
     Indication: Multiple sclerosis
     Route: 050
     Dates: start: 20170313
  4. BRINTELLIX [Concomitant]
     Active Substance: VORTIOXETINE HYDROBROMIDE
     Indication: Multiple sclerosis
     Route: 050
     Dates: start: 20170313
  5. TIZANIDINE [Concomitant]
     Active Substance: TIZANIDINE
     Indication: Multiple sclerosis
     Route: 050
     Dates: start: 20170925
  6. NALGESIN [Concomitant]
     Indication: Multiple sclerosis
     Route: 050
     Dates: start: 20170925
  7. RIVOTRIL [Concomitant]
     Active Substance: CLONAZEPAM
     Indication: Multiple sclerosis
     Route: 050
     Dates: start: 20140214

REACTIONS (1)
  - Hepatic lesion [Not Recovered/Not Resolved]

NARRATIVE: CASE EVENT DATE: 20220824
